FAERS Safety Report 23748286 (Version 1)
Quarter: 2024Q2

REPORT INFORMATION
  Report Type: Spontaneous
  Country: US (occurrence: US)
  Receive Date: 20240416
  Receipt Date: 20240416
  Transmission Date: 20240716
  Serious: No
  Sender: FDA-Public Use
  Company Number: US-SA-SAC20240412000967

PATIENT
  Sex: Male
  Weight: 152.86 kg

DRUGS (3)
  1. DUPIXENT [Suspect]
     Active Substance: DUPILUMAB
     Indication: Nasal polyps
     Dosage: 300 MG, QOW
     Route: 058
     Dates: start: 20220424
  2. PREDNISONE [Concomitant]
     Active Substance: PREDNISONE
  3. LACTASE [Concomitant]
     Active Substance: LACTASE

REACTIONS (1)
  - Illness [Unknown]
